FAERS Safety Report 10451320 (Version 3)
Quarter: 2014Q3

REPORT INFORMATION
  Report Type: Spontaneous
  Country: US (occurrence: US)
  Receive Date: 20140912
  Receipt Date: 20140922
  Transmission Date: 20150326
  Serious: Yes (Hospitalization, Other)
  Sender: FDA-Public Use
  Company Number: PHHY2014US115467

PATIENT
  Sex: Male

DRUGS (3)
  1. ATIVAN [Suspect]
     Active Substance: LORAZEPAM
     Dosage: UNK UKN, UNK
     Route: 048
  2. BUSPIRONE [Suspect]
     Active Substance: BUSPIRONE HYDROCHLORIDE
     Dosage: UNK UKN, UNK
     Route: 048
  3. LIORESAL [Suspect]
     Active Substance: BACLOFEN
     Indication: MUSCLE SPASTICITY
     Dosage: 990 UG, PER DAY
     Route: 037

REACTIONS (12)
  - Drug withdrawal syndrome [Not Recovered/Not Resolved]
  - Erythema [Unknown]
  - Staphylococcus test positive [Unknown]
  - Implant site swelling [Unknown]
  - Muscle spasticity [Not Recovered/Not Resolved]
  - White blood cell count increased [Unknown]
  - Implant site extravasation [Unknown]
  - Implant site infection [Unknown]
  - Pneumonia aspiration [Unknown]
  - Swelling [Unknown]
  - Staphylococcal infection [Unknown]
  - Meningitis [Unknown]
